FAERS Safety Report 12373286 (Version 1)
Quarter: 2016Q2

REPORT INFORMATION
  Report Type: Spontaneous
  Country: GB (occurrence: GB)
  Receive Date: 20160516
  Receipt Date: 20160516
  Transmission Date: 20160815
  Serious: Yes (Other)
  Sender: FDA-Public Use
  Company Number: GB-VALIDUS PHARMACEUTICALS LLC-GB-2016VAL001570

PATIENT
  Age: 48 Year
  Sex: Male

DRUGS (2)
  1. FLECAINIDE [Suspect]
     Active Substance: FLECAINIDE
     Indication: VENTRICULAR TACHYCARDIA
     Dosage: UNK
  2. METOPROLOL TARTRATE. [Suspect]
     Active Substance: METOPROLOL TARTRATE
     Indication: VENTRICULAR TACHYCARDIA
     Dosage: UNK

REACTIONS (2)
  - Cardiogenic shock [Unknown]
  - Ventricular tachycardia [Unknown]

NARRATIVE: CASE EVENT DATE: 2015
